FAERS Safety Report 13962682 (Version 1)
Quarter: 2017Q3

REPORT INFORMATION
  Report Type: Spontaneous
  Country: US (occurrence: US)
  Receive Date: 20170913
  Receipt Date: 20170913
  Transmission Date: 20171128
  Serious: No
  Sender: FDA-Public Use
  Company Number: US-009507513-1709USA001867

PATIENT
  Sex: Female

DRUGS (1)
  1. REMERON [Suspect]
     Active Substance: MIRTAZAPINE
     Dosage: TOOK HALF OF THE DOSE THAT WAS GIVEN
     Route: 048

REACTIONS (4)
  - Weight increased [Unknown]
  - Underdose [Unknown]
  - Irritability [Unknown]
  - Hyperhidrosis [Unknown]
